FAERS Safety Report 6103540-2 (Version None)
Quarter: 2009Q1

REPORT INFORMATION
  Report Type: 
  Country: None (occurrence: None)
  Receive Date: 20090305
  Receipt Date: 20090222
  Transmission Date: 20090719
  Serious: Yes (Death, Hospitalization)
  Sender: FDA-Public Use
  Company Number: IN-BAXTER-2009BH002986

PATIENT
  Sex: Female
  Weight: 47 kg

DRUGS (1)
  1. DIANEAL [Suspect]
     Indication: RENAL FAILURE CHRONIC
     Route: 033
     Dates: end: 20090222

REACTIONS (2)
  - HYPOTENSION [None]
  - MYOCARDIAL INFARCTION [None]
